FAERS Safety Report 9190238 (Version 2)
Quarter: 2013Q1

REPORT INFORMATION
  Report Type: Spontaneous
  Country: GB (occurrence: None)
  Receive Date: 20130322
  Receipt Date: 20130326
  Transmission Date: 20140127
  Serious: Yes (Disabling, Other)
  Sender: FDA-Public Use
  Company Number: AUR-APL-2013-02317

PATIENT
  Age: 63 Year
  Sex: Male

DRUGS (3)
  1. SIMVASTATIN (SIMVASTATIN) [Suspect]
     Indication: PRODUCT USED FOR UNKNOWN INDICATION
     Dosage: 40 MG (40 MG, 1 IN 1 D), ORAL
     Route: 048
     Dates: start: 20130222, end: 20130227
  2. ASPIRIN (ACETYLSALICYCLIC ACID) [Concomitant]
  3. PRARCETAMOL (PARACETAMOL) [Concomitant]

REACTIONS (6)
  - Lethargy [None]
  - Photophobia [None]
  - Procedural pain [None]
  - Skin warm [None]
  - Asthenia [None]
  - Rhabdomyolysis [None]
